FAERS Safety Report 4473991-0 (Version None)
Quarter: 2004Q4

REPORT INFORMATION
  Report Type: 
  Country: None (occurrence: None)
  Receive Date: 20041008
  Receipt Date: 20040921
  Transmission Date: 20050328
  Serious: Yes (Hospitalization)
  Sender: FDA-Public Use
  Company Number: USA040978430

PATIENT
  Age: 78 Year
  Sex: Male

DRUGS (1)
  1. HUMULIN N [Suspect]

REACTIONS (4)
  - MALAISE [None]
  - PHARMACEUTICAL PRODUCT COMPLAINT [None]
  - RIB FRACTURE [None]
  - ROAD TRAFFIC ACCIDENT [None]
